FAERS Safety Report 6197892-5 (Version None)
Quarter: 2009Q2

REPORT INFORMATION
  Report Type: 
  Country: None (occurrence: None)
  Receive Date: 20090521
  Receipt Date: 20090514
  Transmission Date: 20091009
  Serious: Yes (Other)
  Sender: FDA-Public Use
  Company Number: A0784331A

PATIENT
  Age: 78 Year
  Sex: Female

DRUGS (3)
  1. ADVAIR HFA [Suspect]
     Indication: COUGH
     Dosage: 1PUFF TWICE PER DAY
     Route: 055
     Dates: start: 20081201
  2. AMOXICILLIN [Concomitant]
  3. ALLEGRA [Concomitant]

REACTIONS (6)
  - CANDIDIASIS [None]
  - CHOKING [None]
  - DYSPHAGIA [None]
  - EATING DISORDER [None]
  - ORAL DISCOMFORT [None]
  - ORAL PAIN [None]
